FAERS Safety Report 7215632-5 (Version None)
Quarter: 2011Q1

REPORT INFORMATION
  Report Type: 
  Country: None (occurrence: None)
  Receive Date: 20110104
  Receipt Date: 20110104
  Transmission Date: 20110831
  Serious: Yes (Other)
  Sender: FDA-Public Use
  Company Number: None

PATIENT
  Age: 35 Year
  Sex: Female
  Weight: 54.4316 kg

DRUGS (2)
  1. RITALIN [Concomitant]
  2. ABILIFY [Suspect]
     Indication: ANTIDEPRESSANT THERAPY
     Dosage: 5MG 1 TABLET NIGHTLY PO
     Route: 048
     Dates: start: 20080101, end: 20080901

REACTIONS (7)
  - FOOD CRAVING [None]
  - INSOMNIA [None]
  - RESTLESSNESS [None]
  - ABDOMINAL DISTENSION [None]
  - HYPOTHYROIDISM [None]
  - MENTAL DISORDER [None]
  - INTENTIONAL SELF-INJURY [None]
